FAERS Safety Report 7093543-6 (Version None)
Quarter: 2010Q4

REPORT INFORMATION
  Report Type: 
  Country: None (occurrence: None)
  Receive Date: 20101029
  Receipt Date: 20101014
  Transmission Date: 20110411
  Serious: Yes (Life-Threatening, Hospitalization)
  Sender: FDA-Public Use
  Company Number: 1000015358

PATIENT
  Age: 19 Year
  Sex: Female

DRUGS (7)
  1. CITALOPRAM HYDROBROMIDE [Suspect]
     Indication: DEPRESSION
     Dosage: (800 MG, ONCE), ORAL; 20 MG (20 MG, 1 IN 1 D), ORAL
     Route: 048
     Dates: start: 20100714, end: 20100714
  2. SERLECT [Suspect]
     Indication: MAJOR DEPRESSION
     Dosage: (320 MG, ONCE), ORAL; 16 MG (16 MG, 1 IN 1 D), ORAL
     Route: 048
     Dates: start: 20100401, end: 20100714
  3. SERLECT [Suspect]
     Indication: MAJOR DEPRESSION
     Dosage: (320 MG, ONCE), ORAL; 16 MG (16 MG, 1 IN 1 D), ORAL
     Route: 048
     Dates: start: 20100714, end: 20100714
  4. ENALAPRIL MALEATE [Suspect]
     Indication: HYPERTENSION
     Dosage: (ONCE), ORAL; 20/12.5 MG (1 IN 1 D), ORAL
     Route: 048
     Dates: start: 20100714, end: 20100714
  5. LANTUS (INSULIN GLARGINE) (INJECTION) (INSULIN GLARGINE) [Concomitant]
  6. GLUCOPHAGE (METFORMIN) (METFORMIN) [Concomitant]
  7. SIMVASTATIN ACTAVIS (SIMVASTATIN) (10 MILLIGRAM, TABLETS) (SIMVASTATIN [Concomitant]

REACTIONS (13)
  - BLOOD MAGNESIUM DECREASED [None]
  - BLOOD POTASSIUM DECREASED [None]
  - CHEST PAIN [None]
  - DRUG SCREEN POSITIVE [None]
  - ELECTROCARDIOGRAM QT PROLONGED [None]
  - OVERDOSE [None]
  - PALPITATIONS [None]
  - PULMONARY CONGESTION [None]
  - PULMONARY OEDEMA [None]
  - SOMNOLENCE [None]
  - SUICIDAL IDEATION [None]
  - TORSADE DE POINTES [None]
  - VENTRICULAR TACHYCARDIA [None]
